FAERS Safety Report 6361922-8 (Version None)
Quarter: 2009Q3

REPORT INFORMATION
  Report Type: 
  Country: None (occurrence: None)
  Receive Date: 20090821
  Receipt Date: 20090709
  Transmission Date: 20100115
  Serious: No
  Sender: FDA-Public Use
  Company Number: 8048833

PATIENT
  Age: 39 Year
  Sex: Female
  Weight: 84.5 kg

DRUGS (5)
  1. CIMZIA [Suspect]
     Indication: CROHN'S DISEASE
     Dosage: 400 MG SC
     Route: 058
     Dates: start: 20090702
  2. LOMOTIL [Concomitant]
  3. NEXIUM [Concomitant]
  4. DARVOCET-N 100 [Concomitant]
  5. MIRENA [Concomitant]

REACTIONS (4)
  - INJECTION SITE DISCOLOURATION [None]
  - INJECTION SITE HAEMATOMA [None]
  - NAUSEA [None]
  - URTICARIA [None]
